FAERS Safety Report 8814373 (Version 1)
Quarter: 2012Q4

REPORT INFORMATION
  Report Type: Spontaneous
  Country: US (occurrence: None)
  Receive Date: 20120926
  Receipt Date: 20120926
  Transmission Date: 20130627
  Serious: Yes (Hospitalization)
  Sender: FDA-Public Use
  Company Number: DSA_58870_2012

PATIENT
  Age: 69 Year
  Sex: Female
  Weight: 105.24 kg

DRUGS (9)
  1. XENAZINE 12.5 MG (NOT SPECIFIED) [Suspect]
     Indication: DYSKINESIA
     Dosage: (12.5 mg TID Oral)
     Route: 048
     Dates: start: 20120223
  2. DOCUSATE (UNKNOWN UNTIL UNKNOWN) [Concomitant]
  3. CENTRUM SILVER /02363801/(UNKNOWN) [Concomitant]
  4. LANTUS (UNKNOWN) [Concomitant]
  5. NOVOLOG (UNKNOWN) [Concomitant]
  6. ASPRIN (UNKNOWN) [Concomitant]
  7. LIPITOR (UNKNOWN) [Concomitant]
  8. VESICARE (UNKNOWN) [Concomitant]
  9. SYNTHROID [Concomitant]

REACTIONS (2)
  - Knee arthroplasty [None]
  - Electrocardiogram QT shortened [None]
